FAERS Safety Report 4429585-6 (Version None)
Quarter: 2004Q3

REPORT INFORMATION
  Report Type: 
  Country: None (occurrence: None)
  Receive Date: 20040816
  Receipt Date: 20040803
  Transmission Date: 20050211
  Serious: Yes (Other)
  Sender: FDA-Public Use
  Company Number: 2004-08-0521

PATIENT
  Age: 59 Year
  Sex: Male

DRUGS (3)
  1. INTRON A [Suspect]
     Indication: MALIGNANT MELANOMA
     Dosage: 6-4.5 MIU* SUBCUTANEOUS
     Route: 058
  2. INTRON A [Suspect]
     Indication: MALIGNANT MELANOMA
     Dosage: 6 MIU TIW SUBCUTANEOUS
     Route: 058
  3. INTRON A [Suspect]
     Indication: MALIGNANT MELANOMA
     Dosage: 4.5 MIU TIW SUBCUTANEOUS
     Route: 058

REACTIONS (6)
  - ANTIBODY TEST ABNORMAL [None]
  - BLOOD LACTATE DEHYDROGENASE INCREASED [None]
  - CHEST DISCOMFORT [None]
  - DYSPNOEA [None]
  - GAMMA-GLUTAMYLTRANSFERASE INCREASED [None]
  - OPTIC ISCHAEMIC NEUROPATHY [None]
